FAERS Safety Report 22088641 (Version 1)
Quarter: 2023Q1

REPORT INFORMATION
  Report Type: Spontaneous
  Country: AU (occurrence: AU)
  Receive Date: 20230313
  Receipt Date: 20230313
  Transmission Date: 20230418
  Serious: Yes (Other)
  Sender: FDA-Public Use
  Company Number: AU-GLAXOSMITHKLINE-AU2023APC033598

PATIENT

DRUGS (1)
  1. ZEJULA [Suspect]
     Active Substance: NIRAPARIB
     Indication: Ovarian cancer
     Dosage: UNK
     Dates: start: 20210806, end: 20220322

REACTIONS (4)
  - Small intestinal obstruction [Unknown]
  - Malignant neoplasm progression [Unknown]
  - Malignant gastrointestinal obstruction [Unknown]
  - Metastases to fallopian tube [Unknown]

NARRATIVE: CASE EVENT DATE: 20220901
